FAERS Safety Report 10608276 (Version 1)
Quarter: 2014Q4

REPORT INFORMATION
  Report Type: Spontaneous
  Country: DE (occurrence: DE)
  Receive Date: 20141125
  Receipt Date: 20141125
  Transmission Date: 20150529
  Serious: Yes (Hospitalization, Other)
  Sender: FDA-Public Use
  Company Number: DE-TEVA-522973GER

PATIENT
  Age: 71 Year
  Sex: Female

DRUGS (14)
  1. OLANZAPIN [Suspect]
     Active Substance: OLANZAPINE
     Route: 048
     Dates: start: 20130717, end: 20130718
  2. DILTIAZEM [Suspect]
     Active Substance: DILTIAZEM
     Route: 048
     Dates: start: 201305
  3. ACETYLSALICYLSAEURE [Concomitant]
     Active Substance: ASPIRIN
     Route: 048
  4. IBUPROFEN. [Concomitant]
     Active Substance: IBUPROFEN
     Route: 048
     Dates: start: 20130723, end: 20130723
  5. IBUPROFEN. [Concomitant]
     Active Substance: IBUPROFEN
     Dosage: 400-800 MG
     Route: 048
     Dates: start: 20130806, end: 20130811
  6. MOCLOBEMID [Suspect]
     Active Substance: MOCLOBEMIDE
     Route: 048
     Dates: start: 20130719, end: 20130719
  7. PANTOPRAZOLE [Suspect]
     Active Substance: PANTOPRAZOLE SODIUM
     Route: 048
     Dates: start: 20130717, end: 20130725
  8. CELLCEPT [Suspect]
     Active Substance: MYCOPHENOLATE MOFETIL\MYCOPHENOLATE MOFETIL HYDROCHLORIDE
     Route: 048
  9. MOCLOBEMID [Suspect]
     Active Substance: MOCLOBEMIDE
     Route: 048
     Dates: start: 20130720
  10. SANDIMMUNE [Suspect]
     Active Substance: CYCLOSPORINE
     Route: 048
  11. LORAZEPAM. [Concomitant]
     Active Substance: LORAZEPAM
     Route: 048
     Dates: start: 20130720, end: 20130721
  12. PANTOPRAZOLE [Suspect]
     Active Substance: PANTOPRAZOLE SODIUM
     Route: 048
     Dates: start: 20130726
  13. LORAZEPAM. [Concomitant]
     Active Substance: LORAZEPAM
     Route: 048
     Dates: start: 20130723
  14. OLANZAPIN [Suspect]
     Active Substance: OLANZAPINE
     Route: 048
     Dates: start: 20130719, end: 20130819

REACTIONS (2)
  - Atrial fibrillation [Recovered/Resolved]
  - Tremor [Recovering/Resolving]

NARRATIVE: CASE EVENT DATE: 20130723
